FAERS Safety Report 16425555 (Version 1)
Quarter: 2019Q2

REPORT INFORMATION
  Report Type: Spontaneous
  Country: US (occurrence: US)
  Receive Date: 20190613
  Receipt Date: 20190613
  Transmission Date: 20190711
  Serious: No
  Sender: FDA-Public Use
  Company Number: US-PFIZER INC-2019247833

PATIENT
  Age: 65 Year
  Sex: Female

DRUGS (1)
  1. OGEN [Suspect]
     Active Substance: ESTROPIPATE
     Dosage: UNK

REACTIONS (2)
  - Asthma [Unknown]
  - Drug hypersensitivity [Unknown]

NARRATIVE: CASE EVENT DATE: 20141111
